FAERS Safety Report 5953503-2 (Version None)
Quarter: 2008Q4

REPORT INFORMATION
  Report Type: 
  Country: None (occurrence: None)
  Receive Date: 20081114
  Receipt Date: 20081104
  Transmission Date: 20090506
  Serious: Yes (Hospitalization)
  Sender: FDA-Public Use
  Company Number: FR-BAXTER-2008BH009902

PATIENT
  Sex: Female

DRUGS (13)
  1. TISSUCOL/TISSEEL KIT STIM3 [Suspect]
     Indication: HAEMOSTASIS
     Dosage: DOSE UNIT:UNKNOWN
     Route: 065
     Dates: start: 20080305, end: 20080305
  2. TISSUCOL/TISSEEL KIT STIM3 [Suspect]
     Indication: SPINAL LAMINECTOMY
     Dosage: DOSE UNIT:UNKNOWN
     Route: 065
     Dates: start: 20080305, end: 20080305
  3. SEVOFLURANE [Concomitant]
     Indication: ANAESTHESIA
     Dates: start: 20080305, end: 20080305
  4. ATRACURIUM BESYLATE [Concomitant]
     Indication: ANAESTHESIA
     Dates: start: 20080305, end: 20080305
  5. HYPNOVEL [Concomitant]
     Indication: ANAESTHESIA
     Dates: start: 20080305, end: 20080305
  6. ETOMIDATE [Concomitant]
     Indication: ANAESTHESIA
     Dates: start: 20080305, end: 20080305
  7. XYLOCAINE [Concomitant]
     Indication: ANAESTHESIA
     Route: 061
     Dates: start: 20080305, end: 20080305
  8. SUFENTANIL CITRATE [Concomitant]
     Indication: ANAESTHESIA
     Dates: start: 20080305, end: 20080305
  9. CEFAZOLIN [Concomitant]
     Dates: start: 20080305
  10. PERFALGAN [Concomitant]
  11. MORPHINE [Concomitant]
  12. SOLU-MEDROL [Concomitant]
  13. ACUPAN [Concomitant]

REACTIONS (4)
  - PYREXIA [None]
  - RENAL FAILURE [None]
  - THROMBOCYTOPENIA [None]
  - URTICARIA [None]
